FAERS Safety Report 26180640 (Version 1)
Quarter: 2025Q4

REPORT INFORMATION
  Report Type: Spontaneous
  Country: US (occurrence: US)
  Receive Date: 20251219
  Receipt Date: 20251219
  Transmission Date: 20260118
  Serious: No
  Sender: NOVARTIS
  Company Number: US-002147023-NVSC2025US194255

PATIENT
  Age: 75 Year
  Sex: Male

DRUGS (1)
  1. RHAPSIDO [Suspect]
     Active Substance: REMIBRUTINIB
     Indication: Chronic spontaneous urticaria
     Dosage: 25 MG/KG, BID
     Route: 048

REACTIONS (2)
  - Headache [Unknown]
  - Fatigue [Unknown]

NARRATIVE: CASE EVENT DATE: 20251101
